FAERS Safety Report 7681767-6 (Version None)
Quarter: 2011Q3

REPORT INFORMATION
  Report Type: 
  Country: None (occurrence: None)
  Receive Date: 20110812
  Receipt Date: 20110728
  Transmission Date: 20111222
  Serious: Yes (Death, Hospitalization)
  Sender: FDA-Public Use
  Company Number: US-WATSON-2011-12404

PATIENT
  Age: 43 Year
  Sex: Female

DRUGS (2)
  1. PLATINOL-AQ [Suspect]
     Indication: NEOPLASM MALIGNANT
     Dosage: 100 MG, SINGLE
  2. FLUOROURACIL [Suspect]
     Indication: NEOPLASM MALIGNANT
     Dosage: 5250 MG, (4,000 MG/M2) OVER 4 HRS
     Route: 042

REACTIONS (8)
  - DRUG ADMINISTRATION ERROR [None]
  - ACCIDENTAL OVERDOSE [None]
  - PANCYTOPENIA [None]
  - MULTI-ORGAN FAILURE [None]
  - MUCOSAL INFLAMMATION [None]
  - HAEMODYNAMIC INSTABILITY [None]
  - NAUSEA [None]
  - VOMITING [None]
